FAERS Safety Report 10808986 (Version 1)
Quarter: 2015Q1

REPORT INFORMATION
  Report Type: Spontaneous
  Country: US (occurrence: US)
  Receive Date: 20150217
  Receipt Date: 20150217
  Transmission Date: 20150721
  Serious: No
  Sender: FDA-Public Use
  Company Number: US-ABBVIE-14K-163-1265517-00

PATIENT
  Age: 49 Year
  Sex: Male
  Weight: 86.26 kg

DRUGS (2)
  1. HUMIRA [Suspect]
     Active Substance: ADALIMUMAB
     Indication: PSORIASIS
     Dates: start: 20140317, end: 20140317
  2. HUMIRA [Suspect]
     Active Substance: ADALIMUMAB
     Dates: start: 20140331, end: 20140707

REACTIONS (3)
  - Stomatitis [Recovering/Resolving]
  - Hypersensitivity [Recovering/Resolving]
  - Rash [Recovering/Resolving]

NARRATIVE: CASE EVENT DATE: 20140711
